FAERS Safety Report 23635517 (Version 1)
Quarter: 2024Q1

REPORT INFORMATION
  Report Type: Spontaneous
  Country: BR (occurrence: BR)
  Receive Date: 20240315
  Receipt Date: 20240315
  Transmission Date: 20240410
  Serious: Yes (Other)
  Sender: FDA-Public Use
  Company Number: BR-ULTRAGENYX PHARMACEUTICAL INC.-BR-UGX-24-00433

PATIENT
  Age: 64 Year
  Sex: Female

DRUGS (1)
  1. DOJOLVI [Suspect]
     Active Substance: TRIHEPTANOIN
     Indication: Product used for unknown indication
     Dosage: UNK

REACTIONS (1)
  - Rhabdomyolysis [Recovered/Resolved]
